FAERS Safety Report 9879310 (Version 2)
Quarter: 2014Q2

REPORT INFORMATION
  Report Type: Spontaneous
  Country: FR (occurrence: FR)
  Receive Date: 20140206
  Receipt Date: 20140514
  Transmission Date: 20141212
  Serious: Yes (Disabling, Other)
  Sender: FDA-Public Use
  Company Number: FR-CELGENEUS-056-21880-14014640

PATIENT
  Age: 54 Year
  Sex: Female

DRUGS (23)
  1. REVLIMID [Suspect]
     Indication: PLASMA CELL MYELOMA
     Dosage: 25 MILLIGRAM/SQ. METER
     Route: 048
     Dates: start: 20070601
  2. REVLIMID [Suspect]
     Route: 048
     Dates: start: 201107
  3. REVLIMID [Suspect]
     Dosage: 20 MILLIGRAM
     Route: 065
     Dates: start: 20070726
  4. REVLIMID [Suspect]
     Dosage: 10 MILLIGRAM
     Route: 048
     Dates: start: 201004
  5. REVLIMID [Suspect]
     Route: 048
     Dates: start: 20100722, end: 20110211
  6. REVLIMID [Suspect]
     Dosage: 25 MILLIGRAM/SQ. METER
     Route: 048
     Dates: start: 20070601, end: 20110211
  7. REVLIMID [Suspect]
     Dosage: 5 MILLIGRAM
     Route: 048
     Dates: end: 201102
  8. THALIDOMIDE [Suspect]
     Indication: PLASMA CELL MYELOMA
     Route: 048
     Dates: start: 20081217
  9. THALIDOMIDE [Suspect]
     Dosage: 200
     Route: 065
     Dates: start: 20090102
  10. THALIDOMIDE [Suspect]
     Dosage: 100
     Route: 065
     Dates: end: 20091030
  11. VELCADE [Concomitant]
     Indication: PLASMA CELL MYELOMA
     Route: 065
     Dates: start: 20081217
  12. VELCADE [Concomitant]
     Route: 065
     Dates: start: 20060912, end: 20061214
  13. VELCADE [Concomitant]
     Dosage: 1.3 MILLIGRAM/SQ. METER
     Route: 065
     Dates: start: 20090102, end: 20091030
  14. DEXAMETHASONE [Concomitant]
     Indication: PLASMA CELL MYELOMA
     Route: 065
     Dates: start: 20081217
  15. DEXAMETHASONE [Concomitant]
     Route: 065
     Dates: start: 201107
  16. DEXAMETHASONE [Concomitant]
     Route: 065
     Dates: start: 20060912, end: 20061214
  17. DEXAMETHASONE [Concomitant]
     Route: 065
     Dates: start: 20070102, end: 20070129
  18. DEXAMETHASONE [Concomitant]
     Dosage: 40 MILLIGRAM
     Route: 065
     Dates: start: 20090102, end: 20091030
  19. DEXAMETHASONE [Concomitant]
     Route: 065
     Dates: start: 20100722, end: 20110211
  20. CYCLOPHOSPHAMIDE [Concomitant]
     Indication: PLASMA CELL MYELOMA
     Route: 065
     Dates: start: 20070102, end: 20070129
  21. CYCLOPHOSPHAMIDE [Concomitant]
     Dosage: HD
     Route: 065
     Dates: start: 20091230
  22. AREDIA [Concomitant]
     Indication: PRODUCT USED FOR UNKNOWN INDICATION
     Route: 065
     Dates: start: 20080207
  23. AREDIA [Concomitant]
     Route: 065
     Dates: start: 20100722, end: 20110211

REACTIONS (5)
  - Staphylococcal sepsis [Recovered/Resolved]
  - Pneumonia [Recovered/Resolved]
  - Plasma cell myeloma recurrent [Recovering/Resolving]
  - Plasma cell myeloma recurrent [Not Recovered/Not Resolved]
  - Treatment failure [Unknown]
